FAERS Safety Report 23169156 (Version 1)
Quarter: 2023Q4

REPORT INFORMATION
  Report Type: Spontaneous
  Country: ES (occurrence: ES)
  Receive Date: 20231110
  Receipt Date: 20231110
  Transmission Date: 20240109
  Serious: Yes (Life-Threatening, Hospitalization, Other)
  Sender: FDA-Public Use
  Company Number: ES-AEMPS-1444614

PATIENT
  Sex: Male

DRUGS (1)
  1. AMOXICILLIN\CLAVULANIC ACID [Suspect]
     Active Substance: AMOXICILLIN\CLAVULANIC ACID
     Indication: Infected skin ulcer
     Dosage: UNK
     Route: 042
     Dates: start: 20230829, end: 20230829

REACTIONS (2)
  - Anaphylactic shock [Recovered/Resolved]
  - Documented hypersensitivity to administered product [Recovered/Resolved]

NARRATIVE: CASE EVENT DATE: 20230829
